FAERS Safety Report 7011855-9 (Version None)
Quarter: 2010Q3

REPORT INFORMATION
  Report Type: 
  Country: None (occurrence: None)
  Receive Date: 20100924
  Receipt Date: 20100914
  Transmission Date: 20110219
  Serious: Yes (Hospitalization, Other)
  Sender: FDA-Public Use
  Company Number: US-ASTRAZENECA-2010SE43263

PATIENT
  Age: 75 Year
  Sex: Female
  Weight: 81.6 kg

DRUGS (6)
  1. NEXIUM [Suspect]
     Indication: GASTROOESOPHAGEAL REFLUX DISEASE
     Route: 048
     Dates: start: 20070101
  2. ALENDRONATE SODIUM [Concomitant]
  3. CADUET [Concomitant]
     Indication: HYPERTENSION
     Dosage: 10/20 DAILY
  4. LISINOPRIL [Concomitant]
     Indication: HYPERTENSION
     Dosage: BID
  5. FEXOFENADINE HCL [Concomitant]
     Dosage: DAILY
  6. VITAMINS [Concomitant]

REACTIONS (4)
  - BLISTER [None]
  - DIVERTICULITIS [None]
  - LOSS OF CONSCIOUSNESS [None]
  - SKIN EXFOLIATION [None]
